FAERS Safety Report 24789924 (Version 4)
Quarter: 2025Q2

REPORT INFORMATION
  Report Type: Report from Study
  Country: CA (occurrence: CA)
  Receive Date: 20241230
  Receipt Date: 20250613
  Transmission Date: 20250716
  Serious: Yes (Hospitalization, Other)
  Sender: OTSUKA
  Company Number: CA-OTSUKA-2024_022774

PATIENT
  Sex: Female

DRUGS (2)
  1. ARIPIPRAZOLE [Suspect]
     Active Substance: ARIPIPRAZOLE
     Indication: Product used for unknown indication
     Dosage: 400 MG, QM
     Route: 030
  2. ARIPIPRAZOLE [Suspect]
     Active Substance: ARIPIPRAZOLE
     Route: 030

REACTIONS (6)
  - Substance abuse [Unknown]
  - Hallucination, auditory [Recovered/Resolved]
  - Hallucination, auditory [Not Recovered/Not Resolved]
  - Depression [Unknown]
  - Refusal of treatment by patient [Unknown]
  - Inappropriate schedule of product administration [Recovered/Resolved]
